FAERS Safety Report 7648409-7 (Version None)
Quarter: 2011Q3

REPORT INFORMATION
  Report Type: 
  Country: None (occurrence: None)
  Receive Date: 20110801
  Receipt Date: 20110722
  Transmission Date: 20111222
  Serious: Yes (Other)
  Sender: FDA-Public Use
  Company Number: SE-GENENTECH-318746

PATIENT
  Sex: Female

DRUGS (7)
  1. PRIMPERAN (BELGIUM) [Concomitant]
     Indication: PRODUCT USED FOR UNKNOWN INDICATION
  2. GAVISCON (ALGINIC ACID) [Concomitant]
     Indication: PRODUCT USED FOR UNKNOWN INDICATION
  3. BETNOVAT [Concomitant]
     Indication: PRODUCT USED FOR UNKNOWN INDICATION
  4. MILDISON [Concomitant]
     Indication: PRODUCT USED FOR UNKNOWN INDICATION
  5. XOLAIR [Suspect]
     Indication: ASTHMA
     Dosage: 300 MG, 1/MONTH
     Route: 058
     Dates: start: 20070411, end: 20110310
  6. XOLAIR [Suspect]
     Dosage: UNK
     Dates: end: 20110401
  7. OMEPRAZOLE [Concomitant]
     Indication: PRODUCT USED FOR UNKNOWN INDICATION

REACTIONS (10)
  - MIGRAINE [None]
  - DYSPEPSIA [None]
  - HEADACHE [None]
  - FATIGUE [None]
  - WEIGHT INCREASED [None]
  - ABORTION SPONTANEOUS [None]
  - SWELLING [None]
  - THYROID DISORDER [None]
  - MATERNAL EXPOSURE DURING PREGNANCY [None]
  - OEDEMA [None]
